FAERS Safety Report 19972969 (Version 1)
Quarter: 2021Q4

REPORT INFORMATION
  Report Type: Spontaneous
  Country: US (occurrence: US)
  Receive Date: 20211019
  Receipt Date: 20211019
  Transmission Date: 20220303
  Serious: No
  Sender: FDA-Public Use
  Company Number: None

PATIENT
  Sex: Female

DRUGS (1)
  1. AMBRISENTAN [Suspect]
     Active Substance: AMBRISENTAN
     Indication: Pulmonary arterial hypertension
     Route: 048
     Dates: start: 20190819

REACTIONS (6)
  - International normalised ratio increased [None]
  - Therapy interrupted [None]
  - Seizure [None]
  - Electrolyte imbalance [None]
  - Blood sodium decreased [None]
  - Blood potassium decreased [None]
